FAERS Safety Report 21684727 (Version 4)
Quarter: 2023Q4

REPORT INFORMATION
  Report Type: Report from Study
  Country: US (occurrence: US)
  Receive Date: 20221205
  Receipt Date: 20231222
  Transmission Date: 20240110
  Serious: Yes (Hospitalization, Other)
  Sender: FDA-Public Use
  Company Number: US-ABBVIE-4223850

PATIENT
  Age: 89 Year
  Sex: Male
  Weight: 65 kg

DRUGS (5)
  1. IMBRUVICA [Suspect]
     Active Substance: IBRUTINIB
     Indication: Chronic lymphocytic leukaemia
     Dosage: TIME INTERVAL: 0.33333333 DAYS: STRENGTH:140 MG
     Route: 048
     Dates: start: 20160728, end: 20221101
  2. COVID-19 vaccine [Concomitant]
     Indication: Product used for unknown indication
     Dosage: TIME INTERVAL: TOTAL: FIRST DOSE
     Route: 030
  3. COVID-19 vaccine [Concomitant]
     Indication: Product used for unknown indication
     Dosage: TIME INTERVAL: TOTAL: SECOND DOSE
     Route: 030
  4. COVID-19 vaccine [Concomitant]
     Indication: Product used for unknown indication
     Dosage: TIME INTERVAL: TOTAL: BOOSTER DOSE
     Route: 030
  5. INFLUENZA VIRUS VACCINE [Concomitant]
     Active Substance: INFLUENZA VIRUS VACCINE
     Indication: Product used for unknown indication
     Dosage: TIME INTERVAL: TOTAL
     Route: 030

REACTIONS (5)
  - Pneumonia [Unknown]
  - Skin cancer [Unknown]
  - COVID-19 [Unknown]
  - Cataract [Unknown]
  - Therapeutic product effect decreased [Unknown]

NARRATIVE: CASE EVENT DATE: 20221001
